FAERS Safety Report 5518397-8 (Version None)
Quarter: 2007Q4

REPORT INFORMATION
  Report Type: 
  Country: None (occurrence: None)
  Receive Date: 20071115
  Receipt Date: 20071107
  Transmission Date: 20080405
  Serious: Yes (Hospitalization)
  Sender: FDA-Public Use
  Company Number: JP-MERCK-0711USA02332

PATIENT
  Age: 8 Year
  Sex: Male

DRUGS (1)
  1. PRINIVIL [Suspect]
     Indication: ALPORT'S SYNDROME
     Route: 048
     Dates: start: 20030301

REACTIONS (2)
  - ACUTE PRERENAL FAILURE [None]
  - INFLUENZA [None]
